FAERS Safety Report 14237176 (Version 1)
Quarter: 2017Q4

REPORT INFORMATION
  Report Type: Spontaneous
  Country: US (occurrence: US)
  Receive Date: 20171129
  Receipt Date: 20171129
  Transmission Date: 20180321
  Serious: Yes (Death, Other)
  Sender: FDA-Public Use
  Company Number: US-GE HEALTHCARE LIFE SCIENCES-2017CSU003865

PATIENT
  Age: 71 Year
  Sex: Female

DRUGS (3)
  1. MIDAZOLAM [Concomitant]
     Active Substance: MIDAZOLAM HYDROCHLORIDE
     Dosage: 0.5 MG, UNK
     Route: 042
  2. FENTANYL. [Concomitant]
     Active Substance: FENTANYL
     Dosage: 25 ?G, UNK
     Route: 042
  3. OMNIPAQUE [Suspect]
     Active Substance: IOHEXOL
     Indication: BASILAR ARTERY ANEURYSM
     Dosage: 12 ML, SINGLE
     Route: 013

REACTIONS (4)
  - Hypertension [Recovered/Resolved]
  - Brain death [Fatal]
  - Unresponsive to stimuli [Fatal]
  - Ruptured cerebral aneurysm [Fatal]
